FAERS Safety Report 8117888-3 (Version None)
Quarter: 2012Q1

REPORT INFORMATION
  Report Type: 
  Country: None (occurrence: None)
  Receive Date: 20120207
  Receipt Date: 20120203
  Transmission Date: 20120608
  Serious: Yes (Other)
  Sender: FDA-Public Use
  Company Number: US-AMGEN-USASP2011047556

PATIENT
  Age: 78 Year
  Sex: Female
  Weight: 50 kg

DRUGS (9)
  1. BORON [Concomitant]
     Indication: SUPPLEMENTATION THERAPY
     Dosage: 15 MG, UNK
     Route: 048
     Dates: start: 20100101
  2. CALCIUM CITRATE W/ MAGNESIUM [Concomitant]
     Indication: SUPPLEMENTATION THERAPY
     Dosage: UNK UNK, TID
     Route: 048
     Dates: start: 20100101
  3. COENZYME Q10 [Concomitant]
     Indication: SUPPLEMENTATION THERAPY
     Route: 048
  4. NPLATE [Suspect]
     Indication: IDIOPATHIC THROMBOCYTOPENIC PURPURA
     Route: 058
  5. CALCIUM                            /00060701/ [Concomitant]
     Indication: SUPPLEMENTATION THERAPY
     Dosage: 500 MG, UNK
     Route: 048
     Dates: start: 20100101
  6. PANCREATIN TRIPLE STRENGTH CAP [Concomitant]
     Dosage: 325 MG, TID
     Route: 048
     Dates: start: 20100101
  7. M.V.I. [Concomitant]
  8. ALIGN [Concomitant]
     Dosage: 4 MG, UNK
     Route: 048
     Dates: start: 20100101
  9. GLUCOSAMINE + CHONDROITIN          /01430901/ [Concomitant]

REACTIONS (1)
  - PLATELET COUNT INCREASED [None]
